FAERS Safety Report 6473104-X (Version None)
Quarter: 2009Q4

REPORT INFORMATION
  Report Type: 
  Country: None (occurrence: None)
  Receive Date: 20091204
  Receipt Date: 20090105
  Transmission Date: 20100525
  Serious: Yes (Hospitalization, Other)
  Sender: FDA-Public Use
  Company Number: US-ELI_LILLY_AND_COMPANY-US200808000790

PATIENT
  Sex: Male

DRUGS (14)
  1. CYMBALTA [Suspect]
     Indication: BIPOLAR II DISORDER
     Dosage: 20 MG, DAILY (1/D)
     Route: 048
     Dates: start: 20080108, end: 20080210
  2. CYMBALTA [Suspect]
     Dosage: 30 MG, UNK
     Dates: start: 20080211, end: 20080311
  3. KLONOPIN [Concomitant]
     Indication: ANXIETY
     Dosage: 1 MG, AS NEEDED
  4. KLONOPIN [Concomitant]
     Dosage: 1 D/F, UNK
     Dates: start: 20080301
  5. LAMICTAL [Concomitant]
     Indication: BIPOLAR II DISORDER
     Dosage: 25 MG, UNK
     Dates: start: 20080109, end: 20080101
  6. LAMICTAL [Concomitant]
     Dosage: 100 MG, UNK
     Dates: start: 20080101, end: 20080210
  7. LAMICTAL [Concomitant]
     Dosage: 200 MG, UNK
     Dates: start: 20080211, end: 20080101
  8. LAMICTAL [Concomitant]
     Dosage: 100 MG, UNK
     Dates: start: 20080101, end: 20080507
  9. LAMICTAL [Concomitant]
     Dosage: 300 MG, UNK
     Dates: start: 20080508
  10. AMBIEN [Concomitant]
     Indication: INSOMNIA
     Dosage: 12.5 MG, EACH EVENING
     Route: 048
  11. AMBIEN [Concomitant]
     Dosage: 1 D/F, UNK
     Dates: start: 20080301
  12. LITHIUM CARBONATE [Concomitant]
     Dates: start: 20080109
  13. QUETIAPINE [Concomitant]
     Indication: BIPOLAR II DISORDER
  14. DIPHENHYDRAMINE W/PARACETAMOL [Concomitant]
     Dosage: 1 D/F, UNK
     Dates: start: 20080301

REACTIONS (31)
  - ACUTE RESPIRATORY DISTRESS SYNDROME [None]
  - ANXIETY [None]
  - ASPARTATE AMINOTRANSFERASE INCREASED [None]
  - ASTHENIA [None]
  - COMPARTMENT SYNDROME [None]
  - DEPRESSED LEVEL OF CONSCIOUSNESS [None]
  - DIALYSIS [None]
  - HAEMATOCRIT DECREASED [None]
  - HAEMOGLOBIN DECREASED [None]
  - HYPERTENSION [None]
  - HYPERTRANSAMINASAEMIA [None]
  - HYPOTONIA [None]
  - INTESTINAL FUNCTIONAL DISORDER [None]
  - MULTIPLE DRUG OVERDOSE INTENTIONAL [None]
  - MYOPATHY [None]
  - NEUROPATHY PERIPHERAL [None]
  - PERIPHERAL ARTERIAL OCCLUSIVE DISEASE [None]
  - PERONEAL NERVE PALSY [None]
  - PLATELET COUNT INCREASED [None]
  - POLYCYTHAEMIA [None]
  - POOR QUALITY SLEEP [None]
  - PROTEIN TOTAL INCREASED [None]
  - RED BLOOD CELL COUNT DECREASED [None]
  - RENAL FAILURE ACUTE [None]
  - RESPIRATORY ACIDOSIS [None]
  - RESPIRATORY FAILURE [None]
  - RHABDOMYOLYSIS [None]
  - SEXUAL DYSFUNCTION [None]
  - SUICIDAL IDEATION [None]
  - SUICIDE ATTEMPT [None]
  - TENDON INJURY [None]
